FAERS Safety Report 6259677-0 (Version None)
Quarter: 2009Q3

REPORT INFORMATION
  Report Type: 
  Country: None (occurrence: None)
  Receive Date: 20090708
  Receipt Date: 20090626
  Transmission Date: 20100115
  Serious: Yes (Hospitalization)
  Sender: FDA-Public Use
  Company Number: DE-PFIZER INC-2009232525

PATIENT
  Age: 68 Year

DRUGS (7)
  1. SUNITINIB MALATE [Suspect]
     Indication: METASTATIC RENAL CELL CARCINOMA
     Dosage: 50 MG, 1X/DAY
     Route: 048
     Dates: start: 20051230, end: 20060420
  2. SUNITINIB MALATE [Suspect]
     Dosage: 12.5 MG, 1X/DAY
     Route: 048
     Dates: start: 20060504, end: 20090507
  3. L-THYROXIN [Concomitant]
     Dosage: UNK
     Route: 048
     Dates: start: 20090409
  4. RAMIPRIL [Concomitant]
     Dosage: UNK
     Route: 048
     Dates: start: 20080520, end: 20090512
  5. MAGNESIUM DIASPORAL [Concomitant]
     Dosage: UNK
     Route: 048
     Dates: start: 20081101
  6. PANTOZOL [Concomitant]
     Dosage: UNK
     Route: 048
     Dates: start: 20060421
  7. ASPIRIN [Concomitant]
     Dosage: UNK
     Route: 048
     Dates: start: 20071114

REACTIONS (3)
  - ANAEMIA [None]
  - MYOCARDIAL INFARCTION [None]
  - RESPIRATORY FAILURE [None]
